FAERS Safety Report 10387172 (Version 1)
Quarter: 2014Q3

REPORT INFORMATION
  Report Type: Spontaneous
  Country: US (occurrence: US)
  Receive Date: 20140815
  Receipt Date: 20140815
  Transmission Date: 20150326
  Serious: No
  Sender: FDA-Public Use
  Company Number: US-LUNDBECK-DKLU1096488

PATIENT
  Age: 18 Year
  Sex: Male

DRUGS (6)
  1. SABRIL [Suspect]
     Active Substance: VIGABATRIN
     Dates: start: 20100729
  2. SABRIL [Suspect]
     Active Substance: VIGABATRIN
  3. KEPPRA [Concomitant]
     Active Substance: LEVETIRACETAM
     Indication: PRODUCT USED FOR UNKNOWN INDICATION
  4. TEGRETOL [Concomitant]
     Active Substance: CARBAMAZEPINE
     Indication: PRODUCT USED FOR UNKNOWN INDICATION
  5. SABRIL [Suspect]
     Active Substance: VIGABATRIN
     Indication: COMPLEX PARTIAL SEIZURES
     Dates: start: 20100729
  6. PHENOBARBITAL. [Concomitant]
     Active Substance: PHENOBARBITAL
     Indication: PRODUCT USED FOR UNKNOWN INDICATION

REACTIONS (1)
  - Drug dose omission [Recovered/Resolved]

NARRATIVE: CASE EVENT DATE: 20140107
